FAERS Safety Report 17441646 (Version 1)
Quarter: 2020Q1

REPORT INFORMATION
  Report Type: Spontaneous
  Country: GB (occurrence: GB)
  Receive Date: 20200220
  Receipt Date: 20200220
  Transmission Date: 20200409
  Serious: Yes (Other)
  Sender: FDA-Public Use
  Company Number: GB-009507513-2002GBR007040

PATIENT
  Age: 72 Year
  Sex: Male
  Weight: 54 kg

DRUGS (6)
  1. SIMVASTATIN. [Suspect]
     Active Substance: SIMVASTATIN
     Dosage: 20 MILLIGRAM, QD, AT NIGHT
     Dates: start: 20190312
  2. FUSIDIC ACID [Concomitant]
     Active Substance: FUSIDIC ACID
     Dosage: 4 DOSAGE FORM, QD, APPLY
     Dates: start: 20200108, end: 20200115
  3. ATORVASTATIN [Concomitant]
     Active Substance: ATORVASTATIN
     Dosage: 1 DOSAGE FORM, QD
     Dates: start: 20191210
  4. RAMIPRIL. [Concomitant]
     Active Substance: RAMIPRIL
     Dosage: 1 DOSAGE FORM, QD
     Dates: start: 20190116
  5. TIOTROPIUM BROMIDE [Concomitant]
     Active Substance: TIOTROPIUM BROMIDE
     Dosage: 2 DOSAGE FORM, QD, PUFFS
     Dates: start: 20180614
  6. CLOPIDOGREL [Concomitant]
     Active Substance: CLOPIDOGREL BISULFATE
     Dosage: 1 DOSAGE FORM, QD, LONG TERM AS PER VASULAR SU (INCOMPLETE)
     Dates: start: 20190521

REACTIONS (1)
  - Nightmare [Recovered/Resolved]
